FAERS Safety Report 10596386 (Version 1)
Quarter: 2014Q4

REPORT INFORMATION
  Report Type: Spontaneous
  Country: DE (occurrence: DE)
  Receive Date: 20141120
  Receipt Date: 20141120
  Transmission Date: 20150529
  Serious: Yes (Other)
  Sender: FDA-Public Use
  Company Number: ALCN2014DE006417

PATIENT
  Sex: Female

DRUGS (1)
  1. AZARGA [Suspect]
     Active Substance: BRINZOLAMIDE\TIMOLOL MALEATE
     Route: 047

REACTIONS (2)
  - Pain [Unknown]
  - Gastrointestinal disorder [Unknown]
